FAERS Safety Report 6593591-6 (Version None)
Quarter: 2010Q1

REPORT INFORMATION
  Report Type: 
  Country: None (occurrence: None)
  Receive Date: 20100222
  Receipt Date: 20090824
  Transmission Date: 20100710
  Serious: No
  Sender: FDA-Public Use
  Company Number: US-BRISTOL-MYERS SQUIBB COMPANY-14742787

PATIENT
  Sex: Female

DRUGS (1)
  1. ORENCIA [Suspect]
     Dosage: DURATION OF THERAPY: OVER ONE YEAR

REACTIONS (3)
  - LIP SWELLING [None]
  - UPPER RESPIRATORY TRACT INFECTION [None]
  - URTICARIA [None]
